FAERS Safety Report 4836413-3 (Version None)
Quarter: 2005Q4

REPORT INFORMATION
  Report Type: 
  Country: None (occurrence: None)
  Receive Date: 20051123
  Receipt Date: 20051110
  Transmission Date: 20060501
  Serious: Yes (Death, Hospitalization)
  Sender: FDA-Public Use
  Company Number: PHBS2005TR16974

PATIENT
  Age: 18 Month
  Sex: Female

DRUGS (2)
  1. DESFERRIOXAMINE MESYLATE [Suspect]
     Indication: BLOOD IRON INCREASED
     Dosage: 15 MG/KG/H
  2. DESFERRIOXAMINE MESYLATE [Suspect]
     Dosage: 10 MG/KG/H

REACTIONS (18)
  - ACUTE RESPIRATORY DISTRESS SYNDROME [None]
  - ANOREXIA [None]
  - BLOOD ALKALINE PHOSPHATASE INCREASED [None]
  - BLOOD POTASSIUM INCREASED [None]
  - BLOOD SODIUM DECREASED [None]
  - BLOOD UREA INCREASED [None]
  - CARDIAC FAILURE [None]
  - CARDIOMEGALY [None]
  - FATIGUE [None]
  - HEPATOMEGALY [None]
  - INTERCOSTAL RETRACTION [None]
  - LUNG INFILTRATION [None]
  - OVERDOSE [None]
  - PO2 DECREASED [None]
  - PULMONARY HYPERTENSION [None]
  - TACHYCARDIA [None]
  - TACHYPNOEA [None]
  - VOMITING [None]
